FAERS Safety Report 6346897-X (Version None)
Quarter: 2009Q3

REPORT INFORMATION
  Report Type: 
  Country: None (occurrence: None)
  Receive Date: 20090909
  Receipt Date: 20090909
  Transmission Date: 20100115
  Serious: Yes (Death)
  Sender: FDA-Public Use
  Company Number: None

PATIENT
  Age: 76 Year
  Sex: Female
  Weight: 45.3597 kg

DRUGS (1)
  1. PLAVIX [Suspect]
     Indication: CARDIAC OPERATION
     Dosage: PO
     Route: 048
     Dates: start: 20090406, end: 20090806

REACTIONS (1)
  - LIVER INJURY [None]
